FAERS Safety Report 14891828 (Version 2)
Quarter: 2018Q2

REPORT INFORMATION
  Report Type: Spontaneous
  Country: FR (occurrence: FR)
  Receive Date: 20180514
  Receipt Date: 20180626
  Transmission Date: 20180711
  Serious: Yes (Hospitalization, Other)
  Sender: FDA-Public Use
  Company Number: PHHY2018FR005959

PATIENT
  Age: 73 Year
  Sex: Male
  Weight: 61 kg

DRUGS (2)
  1. IMMUNOGLOBULIN IV [Concomitant]
     Active Substance: HUMAN IMMUNOGLOBULIN G
     Indication: MYOPATHY
     Route: 042
     Dates: start: 20180418
  2. COSENTYX [Suspect]
     Active Substance: SECUKINUMAB
     Indication: PSORIASIS
     Dosage: 2 DF (150 MG), QMO (EVERY 4 WEEKS)
     Route: 058
     Dates: start: 20180214

REACTIONS (8)
  - Dyspnoea [Unknown]
  - Chest pain [Unknown]
  - Myocardial infarction [Recovered/Resolved with Sequelae]
  - Chest discomfort [Unknown]
  - Pain in extremity [Unknown]
  - Pain in jaw [Unknown]
  - Loss of consciousness [Unknown]
  - Angina pectoris [Unknown]

NARRATIVE: CASE EVENT DATE: 20180418
